FAERS Safety Report 15299516 (Version 1)
Quarter: 2018Q3

REPORT INFORMATION
  Report Type: Spontaneous
  Country: DE (occurrence: DE)
  Receive Date: 20180821
  Receipt Date: 20180821
  Transmission Date: 20181010
  Serious: Yes (Congenital Anomaly)
  Sender: FDA-Public Use
  Company Number: DE-TEVA-2018-DE-945309

PATIENT
  Age: 1 Day
  Sex: Male
  Weight: 3.24 kg

DRUGS (6)
  1. IBUPROFEN. [Concomitant]
     Active Substance: IBUPROFEN
     Indication: MIGRAINE
     Dosage: 6 MILLIGRAM DAILY; 600 [MG/D ]/ IF REQUIRED
     Route: 064
  2. METOPROLOL. [Suspect]
     Active Substance: METOPROLOL
     Indication: MIGRAINE PROPHYLAXIS
     Dosage: 71.25 [MG/D ]/ 47.5?0?23.75 MG/D
     Route: 064
     Dates: start: 20170428, end: 20180215
  3. PARACETAMOL [Concomitant]
     Active Substance: ACETAMINOPHEN
     Indication: MIGRAINE
     Dosage: 2000 [MG/D ]/ 1?2 G/D IF REQUIRED
     Route: 064
     Dates: start: 20170428, end: 20180215
  4. CLEXANE 40 [Concomitant]
     Indication: THROMBOSIS PROPHYLAXIS
     Dosage: 120 [MG/D (?40) ]/ INITIAL 40MG/D, DOSAGE INCREASE TO 2 X 60 MG/D
     Route: 064
  5. CIPRALEX [Suspect]
     Active Substance: ESCITALOPRAM OXALATE
     Indication: DEPRESSION
     Dosage: 5 MILLIGRAM DAILY; 5 [MG/D ]
     Route: 064
     Dates: start: 20170518, end: 20180215
  6. AMITRIPTYLIN [Suspect]
     Active Substance: AMITRIPTYLINE
     Indication: MIGRAINE PROPHYLAXIS
     Dosage: 37.5 MILLIGRAM DAILY; 37.5 [MG/D ]
     Route: 064
     Dates: start: 20170518, end: 20180215

REACTIONS (2)
  - Fallot^s tetralogy [Not Recovered/Not Resolved]
  - Atrial septal defect [Not Recovered/Not Resolved]

NARRATIVE: CASE EVENT DATE: 20180215
